FAERS Safety Report 11237700 (Version 2)
Quarter: 2015Q3

REPORT INFORMATION
  Report Type: Report from Study
  Country: US (occurrence: US)
  Receive Date: 20150703
  Receipt Date: 20150820
  Transmission Date: 20151125
  Serious: Yes (Hospitalization, Other)
  Sender: FDA-Public Use
  Company Number: US-GILEAD-2015-0161610

PATIENT
  Age: 76 Year
  Sex: Female

DRUGS (1)
  1. AMBRISENTAN [Suspect]
     Active Substance: AMBRISENTAN
     Indication: PRODUCT USED FOR UNKNOWN INDICATION
     Dosage: 10 MG, QD
     Route: 065
     Dates: start: 20150415

REACTIONS (7)
  - Fall [Unknown]
  - Headache [Recovered/Resolved]
  - Dysarthria [Unknown]
  - Transient ischaemic attack [Unknown]
  - Unevaluable event [Unknown]
  - Fatigue [Unknown]
  - Upper respiratory tract congestion [Unknown]
